FAERS Safety Report 24461267 (Version 1)
Quarter: 2024Q4

REPORT INFORMATION
  Report Type: Spontaneous
  Country: CN (occurrence: CN)
  Receive Date: 20241018
  Receipt Date: 20241018
  Transmission Date: 20250115
  Serious: No
  Sender: ROCHE
  Company Number: CN-ROCHE-3575378

PATIENT
  Age: 44 Year
  Sex: Female
  Weight: 53.0 kg

DRUGS (9)
  1. MABTHERA [Suspect]
     Active Substance: RITUXIMAB
     Indication: Extranodal marginal zone B-cell lymphoma (MALT type)
     Route: 041
     Dates: end: 20240408
  2. CYCLOPHOSPHAMIDE [Concomitant]
     Active Substance: CYCLOPHOSPHAMIDE
     Indication: Extranodal marginal zone B-cell lymphoma (MALT type)
     Dosage: R-CHOP
     Route: 042
     Dates: start: 20240409, end: 20240409
  3. CYCLOPHOSPHAMIDE [Concomitant]
     Active Substance: CYCLOPHOSPHAMIDE
     Dosage: CHOP
     Route: 042
     Dates: start: 20240430, end: 20240430
  4. PIRARUBICIN HYDROCHLORIDE [Concomitant]
     Active Substance: PIRARUBICIN HYDROCHLORIDE
     Indication: Extranodal marginal zone B-cell lymphoma (MALT type)
     Dosage: R-CHOP
     Route: 042
     Dates: start: 20240409, end: 20240409
  5. PIRARUBICIN HYDROCHLORIDE [Concomitant]
     Active Substance: PIRARUBICIN HYDROCHLORIDE
     Dosage: CHOP
     Route: 042
     Dates: start: 20240430, end: 20240430
  6. VINCRISTINE SULFATE [Concomitant]
     Active Substance: VINCRISTINE SULFATE
     Indication: Extranodal marginal zone B-cell lymphoma (MALT type)
     Dosage: R-CHOP
     Route: 042
     Dates: start: 20240409, end: 20240409
  7. VINCRISTINE SULFATE [Concomitant]
     Active Substance: VINCRISTINE SULFATE
     Dosage: CHOP
     Route: 042
     Dates: start: 20240430, end: 20240430
  8. PREDNISONE ACETATE [Concomitant]
     Active Substance: PREDNISONE ACETATE
     Indication: Extranodal marginal zone B-cell lymphoma (MALT type)
     Dosage: R-CHOP
     Route: 048
     Dates: start: 20240409, end: 20240413
  9. PREDNISONE ACETATE [Concomitant]
     Active Substance: PREDNISONE ACETATE
     Dosage: CHOP
     Route: 048
     Dates: start: 20240430, end: 20240504

REACTIONS (2)
  - Herpes zoster [Recovering/Resolving]
  - Off label use [Unknown]

NARRATIVE: CASE EVENT DATE: 20240401
